FAERS Safety Report 4734672-9 (Version None)
Quarter: 2005Q3

REPORT INFORMATION
  Report Type: 
  Country: None (occurrence: None)
  Receive Date: 20050804
  Receipt Date: 20050727
  Transmission Date: 20060218
  Serious: Yes (Life-Threatening, Hospitalization)
  Sender: FDA-Public Use
  Company Number: GB-GLAXOSMITHKLINE-B0389285A

PATIENT
  Age: 84 Year
  Sex: Female

DRUGS (7)
  1. PARACETAMOL [Suspect]
     Route: 065
     Dates: start: 20050702
  2. DULOXETINE [Suspect]
     Indication: DEPRESSION
     Dosage: 30MG PER DAY
     Route: 048
     Dates: start: 20050602, end: 20050702
  3. ATENOLOL [Concomitant]
     Indication: HYPERTENSION
     Dosage: 25MG PER DAY
     Route: 048
  4. ASACOL [Concomitant]
     Indication: IRRITABLE BOWEL SYNDROME
     Route: 065
  5. LACIDIPINE [Concomitant]
     Dosage: 2MG PER DAY
     Route: 048
  6. TRAZODONE HCL [Concomitant]
     Dosage: 150MG PER DAY
     Route: 048
  7. SEROXAT [Concomitant]

REACTIONS (1)
  - OVERDOSE [None]
